FAERS Safety Report 12871130 (Version 1)
Quarter: 2016Q4

REPORT INFORMATION
  Report Type: Spontaneous
  Country: US (occurrence: US)
  Receive Date: 20161021
  Receipt Date: 20161021
  Transmission Date: 20170207
  Serious: No
  Sender: FDA-Public Use
  Company Number: None

PATIENT

DRUGS (2)
  1. STERILE WATER FOR INJECTION STERILE WATER [Suspect]
     Active Substance: WATER
     Route: 042
  2. HEPARIN SOD. INJECTION 1,000 UNITS/ML HEPARIN SODIUM [Suspect]
     Active Substance: HEPARIN SODIUM
     Dosage: 1000 UNITS PER 50 ML?IV BAG
     Route: 042

REACTIONS (2)
  - Product packaging confusion [None]
  - Product commingling [None]
